FAERS Safety Report 13864522 (Version 2)
Quarter: 2017Q3

REPORT INFORMATION
  Report Type: Spontaneous
  Country: PT (occurrence: PT)
  Receive Date: 20170814
  Receipt Date: 20170822
  Transmission Date: 20171127
  Serious: Yes (Life-Threatening, Hospitalization)
  Sender: FDA-Public Use
  Company Number: PT-JNJFOC-20170808272

PATIENT
  Age: 63 Year

DRUGS (4)
  1. TENOFOVIR [Suspect]
     Active Substance: TENOFOVIR
     Indication: CHRONIC LYMPHOCYTIC LEUKAEMIA
     Route: 065
  2. IBRUTINIB [Suspect]
     Active Substance: IBRUTINIB
     Indication: CHRONIC LYMPHOCYTIC LEUKAEMIA
     Route: 048
     Dates: start: 20170426, end: 20170728
  3. TENOFOVIR [Suspect]
     Active Substance: TENOFOVIR
     Indication: NON-HODGKIN^S LYMPHOMA
     Route: 065
  4. INSULIN [Concomitant]
     Active Substance: INSULIN NOS
     Indication: TYPE 2 DIABETES MELLITUS
     Route: 065

REACTIONS (5)
  - Thrombocytopenia [Recovering/Resolving]
  - Haematoma [Recovering/Resolving]
  - Neutropenia [Recovering/Resolving]
  - Hepatitis B reactivation [Not Recovered/Not Resolved]
  - Cellulitis [Recovering/Resolving]

NARRATIVE: CASE EVENT DATE: 20170801
